FAERS Safety Report 6836509-0 (Version None)
Quarter: 2010Q3

REPORT INFORMATION
  Report Type: 
  Country: None (occurrence: None)
  Receive Date: 20100708
  Receipt Date: 20100623
  Transmission Date: 20110219
  Serious: Yes (Hospitalization, Other)
  Sender: FDA-Public Use
  Company Number: ACO_01213_2010

PATIENT
  Age: 42 Year
  Sex: Female
  Weight: 72.5755 kg

DRUGS (11)
  1. AMPYRA [Suspect]
     Indication: GAIT DISTURBANCE
     Dosage: (10 MG BID ORAL)
     Route: 048
     Dates: start: 20100609, end: 20100601
  2. AMANTADINE HCL [Concomitant]
  3. BACLOFEN [Concomitant]
  4. CALCIUM [Concomitant]
  5. COPAXONE /03175301/ [Concomitant]
  6. PROZAC [Concomitant]
  7. ENABLEX [Concomitant]
  8. VITAMIN D [Concomitant]
  9. FISH OIL [Concomitant]
  10. FLUOXETINE [Concomitant]
  11. OMEGA-3 FATTY ACIDS [Concomitant]

REACTIONS (3)
  - GRAND MAL CONVULSION [None]
  - SCREAMING [None]
  - URINARY TRACT INFECTION [None]
